FAERS Safety Report 7258275-X (Version None)
Quarter: 2011Q1

REPORT INFORMATION
  Report Type: 
  Country: None (occurrence: None)
  Receive Date: 20110129
  Receipt Date: 20100715
  Transmission Date: 20110831
  Serious: No
  Sender: FDA-Public Use
  Company Number: US-ABBOTT-10P-163-0657977-00

PATIENT
  Age: 43 Year
  Sex: Female

DRUGS (5)
  1. ASACOL [Concomitant]
     Indication: CROHN'S DISEASE
     Dosage: 400MG 3 TABLETS TWICE A DAY
  2. CLONAZEPAM [Concomitant]
     Indication: INSOMNIA
     Dosage: .5 MG 1/4 TABLET IN THE MORNING, 2 TABLETS AT NIGHT
  3. DEPAKOTE [Concomitant]
     Indication: ANXIETY
     Dosage: AT BEDTIME
  4. LUTERA BIRTH CONTROL PILLS [Concomitant]
     Indication: PRODUCT USED FOR UNKNOWN INDICATION
  5. HUMIRA [Suspect]
     Indication: CROHN'S DISEASE
     Dates: start: 20100306

REACTIONS (2)
  - ALOPECIA [None]
  - OVARIAN CYST [None]
